FAERS Safety Report 5898936-8 (Version None)
Quarter: 2008Q3

REPORT INFORMATION
  Report Type: 
  Country: None (occurrence: None)
  Receive Date: 20080925
  Receipt Date: 20080922
  Transmission Date: 20090109
  Serious: Yes (Hospitalization)
  Sender: FDA-Public Use
  Company Number: ES-PFIZER INC-2008044473

PATIENT
  Age: 54 Year
  Sex: Male

DRUGS (6)
  1. ZARATOR [Suspect]
     Indication: HYPERCHOLESTEROLAEMIA
     Route: 048
     Dates: start: 20050503, end: 20080307
  2. DIAZEPAM [Concomitant]
     Indication: ANTISOCIAL BEHAVIOUR
     Dosage: TEXT:20 MG-FREQ:DAILY
     Route: 048
     Dates: start: 20071008
  3. TRILEPTAL [Concomitant]
     Indication: ANTISOCIAL BEHAVIOUR
     Dosage: TEXT:600 MG
     Route: 048
     Dates: start: 20041209
  4. AKINETON [Concomitant]
     Indication: ANTISOCIAL BEHAVIOUR
     Route: 048
     Dates: start: 20050705
  5. HALOPERIDOL [Concomitant]
     Indication: ANTISOCIAL BEHAVIOUR
     Route: 048
     Dates: start: 20071008
  6. SINOGAN [Concomitant]
     Indication: ANTISOCIAL BEHAVIOUR
     Dosage: TEXT:25 MG
     Route: 048
     Dates: start: 20040409

REACTIONS (1)
  - HYPERKALAEMIA [None]
